FAERS Safety Report 23401020 (Version 2)
Quarter: 2024Q3

REPORT INFORMATION
  Report Type: Spontaneous
  Country: US (occurrence: US)
  Receive Date: 20240115
  Receipt Date: 20240722
  Transmission Date: 20241016
  Serious: Yes (Death, Other)
  Sender: BRISTOL MYERS SQUIBB
  Company Number: US-BRISTOL-MYERS SQUIBB COMPANY-2024-006899

PATIENT
  Age: 57 Year
  Sex: Male
  Weight: 117.93 kg

DRUGS (2)
  1. REVLIMID [Suspect]
     Active Substance: LENALIDOMIDE
     Indication: Plasma cell myeloma
     Dosage: FREQUENCY 14
     Dates: start: 20230831
  2. REVLIMID [Suspect]
     Active Substance: LENALIDOMIDE
     Dosage: D 1 - 14 ONCE A DAY FOR 21 DAYS
     Route: 048
     Dates: start: 20230918

REACTIONS (2)
  - Death [Fatal]
  - Off label use [Unknown]

NARRATIVE: CASE EVENT DATE: 20231208
